FAERS Safety Report 16184831 (Version 1)
Quarter: 2019Q2

REPORT INFORMATION
  Report Type: Spontaneous
  Country: US (occurrence: US)
  Receive Date: 20190411
  Receipt Date: 20190411
  Transmission Date: 20190711
  Serious: No
  Sender: FDA-Public Use
  Company Number: US-PIERREL PHARMA S.P.A.-2018PIR00021

PATIENT
  Age: 74 Year
  Sex: Male

DRUGS (2)
  1. ORABLOC [Suspect]
     Active Substance: ARTICAINE HYDROCHLORIDE\EPINEPHRINE BITARTRATE
     Indication: TOOTH REPAIR
  2. ORABLOC [Suspect]
     Active Substance: ARTICAINE HYDROCHLORIDE\EPINEPHRINE BITARTRATE
     Indication: TOOTH EXTRACTION
     Dosage: 2 DOSAGE UNITS (ONE IN THE UPPER RIGHT QUADRANT, ONE IN THE LOWER LEFT QUADRANT), ONCE
     Route: 004
     Dates: start: 20181204, end: 20181204

REACTIONS (1)
  - Headache [Not Recovered/Not Resolved]

NARRATIVE: CASE EVENT DATE: 20181204
